FAERS Safety Report 9647695 (Version 2)
Quarter: 2013Q4

REPORT INFORMATION
  Report Type: Spontaneous
  Country: US (occurrence: US)
  Receive Date: 20131028
  Receipt Date: 20131213
  Transmission Date: 20140711
  Serious: No
  Sender: FDA-Public Use
  Company Number: US-009507513-1310USA012008

PATIENT
  Age: 55 Year
  Sex: Female
  Weight: 97.51 kg

DRUGS (1)
  1. OXYTROL FOR WOMEN [Suspect]
     Indication: HYPERTONIC BLADDER
     Dosage: 3 DF, UNKNOWN
     Route: 062
     Dates: start: 201309, end: 201309

REACTIONS (2)
  - Skin burning sensation [Recovered/Resolved]
  - Skin irritation [Recovered/Resolved]
